FAERS Safety Report 7609282-6 (Version None)
Quarter: 2011Q3

REPORT INFORMATION
  Report Type: 
  Country: None (occurrence: None)
  Receive Date: 20110714
  Receipt Date: 20110711
  Transmission Date: 20111222
  Serious: Yes (Hospitalization)
  Sender: FDA-Public Use
  Company Number: FR-PFIZER INC-2011035466

PATIENT
  Age: 87 Year
  Sex: Female
  Weight: 65 kg

DRUGS (3)
  1. LYRICA [Suspect]
     Indication: NEUROPATHY PERIPHERAL
     Dosage: 25 MG, 1X/DAY
     Route: 048
  2. LYRICA [Suspect]
     Dosage: 100 MG, 1X/DAY
  3. LYRICA [Suspect]
     Dosage: 150 MG, 1X/DAY
     Dates: end: 20110218

REACTIONS (5)
  - FALL [None]
  - TOXICITY TO VARIOUS AGENTS [None]
  - DRUG INEFFECTIVE [None]
  - VERTIGO [None]
  - SOMNOLENCE [None]
